FAERS Safety Report 5267913-2 (Version None)
Quarter: 2007Q1

REPORT INFORMATION
  Report Type: 
  Country: None (occurrence: None)
  Receive Date: 20061213
  Receipt Date: 20030911
  Transmission Date: 20070707
  Serious: Yes (Hospitalization)
  Sender: FDA-Public Use
  Company Number: 2003UW11598

PATIENT
  Age: 69 Year
  Sex: Female

DRUGS (8)
  1. IRESSA [Suspect]
     Indication: VULVAL CANCER
     Dosage: 250 MG PO
     Route: 048
     Dates: start: 20030824
  2. LEVOXYL [Concomitant]
  3. CELEBREX [Concomitant]
  4. NEURONTIN [Concomitant]
  5. OXYCONTIN [Concomitant]
  6. BENZONATATE [Concomitant]
  7. DECADRON [Concomitant]
  8. ZANTAC [Concomitant]

REACTIONS (1)
  - INTERSTITIAL LUNG DISEASE [None]
